FAERS Safety Report 12246123 (Version 1)
Quarter: 2016Q2

REPORT INFORMATION
  Report Type: Spontaneous
  Country: US (occurrence: None)
  Receive Date: 20160406
  Receipt Date: 20160406
  Transmission Date: 20160815
  Serious: Yes (Hospitalization)
  Sender: FDA-Public Use
  Company Number: None

PATIENT
  Age: 62 Year
  Sex: Female

DRUGS (1)
  1. HARVONI [Suspect]
     Active Substance: LEDIPASVIR\SOFOSBUVIR
     Indication: HEPATITIS C
     Dosage: 1 TABLEWT DAILY BY MOUTH
     Route: 048
     Dates: start: 20160201

REACTIONS (2)
  - Drug dose omission [None]
  - Influenza [None]

NARRATIVE: CASE EVENT DATE: 20160322
